FAERS Safety Report 21973142 (Version 1)
Quarter: 2023Q1

REPORT INFORMATION
  Report Type: Spontaneous
  Country: US (occurrence: US)
  Receive Date: 20230209
  Receipt Date: 20230209
  Transmission Date: 20230418
  Serious: Yes (Other)
  Sender: FDA-Public Use
  Company Number: US-PFIZER INC-202300058207

PATIENT
  Age: 71 Year
  Sex: Female
  Weight: 63.05 kg

DRUGS (2)
  1. IBRANCE [Suspect]
     Active Substance: PALBOCICLIB
     Indication: Breast cancer metastatic
     Dosage: 1 TABLET DAILY FOR 21 DAYS AND THEN 7 DAYS OFF
  2. ANASTROZOLE [Concomitant]
     Active Substance: ANASTROZOLE
     Indication: Hormone replacement therapy
     Dosage: 1 MG, 1X/DAY

REACTIONS (2)
  - Corneal disorder [Recovering/Resolving]
  - Diarrhoea [Recovered/Resolved]
